FAERS Safety Report 7419502-9 (Version None)
Quarter: 2011Q2

REPORT INFORMATION
  Report Type: 
  Country: None (occurrence: None)
  Receive Date: 20110413
  Receipt Date: 20110413
  Transmission Date: 20111010
  Serious: No
  Sender: FDA-Public Use
  Company Number: None

PATIENT

DRUGS (2)
  1. CLINIMIX 4.25/5 SULFITE FREE IN DEXTROSE 5% [Suspect]
  2. CLINIMIX 2.75/5 SULFITE FREE IN DEXTROSE 5% [Suspect]

REACTIONS (2)
  - MEDICATION ERROR [None]
  - PRODUCT PACKAGING ISSUE [None]
